FAERS Safety Report 5611073-2 (Version None)
Quarter: 2008Q1

REPORT INFORMATION
  Report Type: 
  Country: None (occurrence: None)
  Receive Date: 20080201
  Receipt Date: 20080123
  Transmission Date: 20080703
  Serious: Yes (Hospitalization, Other)
  Sender: FDA-Public Use
  Company Number: US-AVENTIS-200810508US

PATIENT
  Age: 53 Year
  Sex: Female

DRUGS (9)
  1. APIDRA [Suspect]
     Dosage: DOSE: UNK
     Dates: start: 20070101, end: 20080101
  2. APIDRA [Suspect]
     Route: 051
     Dates: start: 20080113
  3. APIDRA [Suspect]
     Route: 051
     Dates: start: 20080113
  4. OPTICLIK (INSULIN INJECTION PEN) [Suspect]
     Dates: start: 20070101
  5. LANTUS [Concomitant]
     Dosage: DOSE: UNK
  6. COREG [Concomitant]
     Dosage: DOSE: UNK
  7. BETA PROPRANOLOL [Concomitant]
     Dosage: DOSE: UNK
  8. PROTONIX [Concomitant]
     Dosage: DOSE: UNK
  9. ALDACTONE [Concomitant]
     Dosage: DOSE: UNK

REACTIONS (5)
  - BLOOD GLUCOSE DECREASED [None]
  - BLOOD GLUCOSE INCREASED [None]
  - DRUG INEFFECTIVE [None]
  - HYPERGLYCAEMIA [None]
  - THROMBOSIS [None]
